FAERS Safety Report 8215093-3 (Version None)
Quarter: 2012Q1

REPORT INFORMATION
  Report Type: 
  Country: None (occurrence: None)
  Receive Date: 20120316
  Receipt Date: 20120308
  Transmission Date: 20120608
  Serious: Yes (Hospitalization, Other)
  Sender: FDA-Public Use
  Company Number: PHHY2012IT020113

PATIENT
  Sex: Female

DRUGS (7)
  1. ALLOPURINOL [Suspect]
     Indication: HYPERURICAEMIA
     Dosage: 300 MG, DAILY DOSE
     Route: 048
     Dates: start: 20110214, end: 20111205
  2. DILTIAZEM [Concomitant]
  3. PANTOPRAZOLE SODIUM [Concomitant]
  4. BISOPROLOL FUMARATE [Concomitant]
  5. COUMADIN [Concomitant]
  6. VYTORIN [Concomitant]
  7. LASIX [Concomitant]

REACTIONS (5)
  - BLOOD URIC ACID INCREASED [None]
  - BLOOD LACTATE DEHYDROGENASE INCREASED [None]
  - WHITE BLOOD CELL COUNT INCREASED [None]
  - DRUG ERUPTION [None]
  - BLOOD CREATININE INCREASED [None]
